FAERS Safety Report 15854753 (Version 2)
Quarter: 2019Q1

REPORT INFORMATION
  Report Type: Spontaneous
  Country: JP (occurrence: JP)
  Receive Date: 20190122
  Receipt Date: 20190214
  Transmission Date: 20190417
  Serious: Yes (Hospitalization)
  Sender: FDA-Public Use
  Company Number: JP-ELI_LILLY_AND_COMPANY-JP201901007681

PATIENT
  Sex: Female

DRUGS (2)
  1. FASLODEX [Concomitant]
     Active Substance: FULVESTRANT
     Indication: BREAST CANCER RECURRENT
     Dosage: UNK
     Route: 030
     Dates: start: 20190109
  2. VERZENIO [Suspect]
     Active Substance: ABEMACICLIB
     Indication: BREAST CANCER RECURRENT
     Dosage: 150 MG, SINGLE
     Route: 051
     Dates: start: 20190112, end: 20190112

REACTIONS (3)
  - Wrong technique in product usage process [Unknown]
  - Incorrect route of product administration [Unknown]
  - Hepatic function abnormal [Recovered/Resolved]

NARRATIVE: CASE EVENT DATE: 20190112
